FAERS Safety Report 25284309 (Version 2)
Quarter: 2025Q2

REPORT INFORMATION
  Report Type: Spontaneous
  Country: SI (occurrence: SI)
  Receive Date: 20250508
  Receipt Date: 20250523
  Transmission Date: 20250717
  Serious: Yes (Other)
  Sender: BAYER HEALTHCARE PHARMACEUTICALS INC.
  Company Number: SI-BAYER-2025A062181

PATIENT
  Age: 77 Year
  Sex: Male
  Weight: 74 kg

DRUGS (11)
  1. KERENDIA [Suspect]
     Active Substance: FINERENONE
     Indication: Chronic kidney disease
     Dosage: 10 MG, QD
     Route: 048
     Dates: start: 202501
  2. KERENDIA [Suspect]
     Active Substance: FINERENONE
     Indication: Type 2 diabetes mellitus
  3. GLIQUIDONE [Concomitant]
     Active Substance: GLIQUIDONE
  4. JARDIANCE [Concomitant]
     Active Substance: EMPAGLIFLOZIN
  5. VALSARTAN [Concomitant]
     Active Substance: VALSARTAN
  6. CRESTOR [Concomitant]
     Active Substance: ROSUVASTATIN CALCIUM
  7. INDAPAMIDE [Concomitant]
     Active Substance: INDAPAMIDE
  8. ASPIRIN [Concomitant]
     Active Substance: ASPIRIN
  9. Lercapress [Concomitant]
  10. ALLOPURINOL [Concomitant]
     Active Substance: ALLOPURINOL
  11. Prostide [Concomitant]

REACTIONS (2)
  - Blood pressure increased [Not Recovered/Not Resolved]
  - Glomerular filtration rate decreased [Not Recovered/Not Resolved]
